FAERS Safety Report 8070998-1 (Version None)
Quarter: 2012Q1

REPORT INFORMATION
  Report Type: 
  Country: None (occurrence: None)
  Receive Date: 20120125
  Receipt Date: 20120117
  Transmission Date: 20120608
  Serious: Yes (Other)
  Sender: FDA-Public Use
  Company Number: CHPA2012US001546

PATIENT
  Age: 56 Year
  Sex: Male

DRUGS (1)
  1. TRANSDERM SCOP [Suspect]
     Indication: MOTION SICKNESS
     Dosage: 1 DF, Q72H PRN
     Route: 062
     Dates: start: 20111201, end: 20111231

REACTIONS (7)
  - LOSS OF CONSCIOUSNESS [None]
  - APHASIA [None]
  - GAIT DISTURBANCE [None]
  - COGNITIVE DISORDER [None]
  - AMNESIA [None]
  - PARALYSIS [None]
  - INJURY [None]
